FAERS Safety Report 9389348 (Version 2)
Quarter: 2013Q3

REPORT INFORMATION
  Report Type: Spontaneous
  Country: US (occurrence: US)
  Receive Date: 20130708
  Receipt Date: 20130904
  Transmission Date: 20140515
  Serious: No
  Sender: FDA-Public Use
  Company Number: US-AMGEN-USASP2013042313

PATIENT
  Age: 51 Year
  Sex: Male

DRUGS (2)
  1. ENBREL [Suspect]
     Indication: RHEUMATOID ARTHRITIS
     Dosage: 50 MG, QWK
     Route: 065
     Dates: start: 20130531
  2. PLAQUENIL                          /00072602/ [Concomitant]
     Dosage: UNK UNK, BID
     Dates: start: 201304

REACTIONS (2)
  - Musculoskeletal stiffness [Not Recovered/Not Resolved]
  - Drug effect incomplete [Not Recovered/Not Resolved]
